FAERS Safety Report 21074363 (Version 2)
Quarter: 2022Q3

REPORT INFORMATION
  Report Type: Spontaneous
  Country: JP (occurrence: JP)
  Receive Date: 20220713
  Receipt Date: 20220930
  Transmission Date: 20221027
  Serious: Yes (Other)
  Sender: FDA-Public Use
  Company Number: JP-SA-2022SA269590

PATIENT
  Age: 15 Year
  Sex: Female

DRUGS (1)
  1. DUPIXENT [Suspect]
     Active Substance: DUPILUMAB
     Indication: Dermatitis atopic
     Dosage: 300 MG, TWICE, INITIAL DOSE
     Route: 058
     Dates: start: 20220625, end: 20220625

REACTIONS (7)
  - Anaphylactic shock [Recovered/Resolved]
  - Depressed level of consciousness [Recovered/Resolved]
  - Pallor [Recovered/Resolved]
  - Blood pressure decreased [Recovered/Resolved]
  - Feeling abnormal [Recovered/Resolved]
  - Nausea [Recovered/Resolved]
  - Lip discolouration [Recovered/Resolved]

NARRATIVE: CASE EVENT DATE: 20220625
